FAERS Safety Report 4561381-1 (Version None)
Quarter: 2005Q1

REPORT INFORMATION
  Report Type: 
  Country: None (occurrence: None)
  Receive Date: 20050126
  Receipt Date: 20041217
  Transmission Date: 20050727
  Serious: Yes (Hospitalization)
  Sender: FDA-Public Use
  Company Number: NL-ROCHE-389538

PATIENT
  Age: 54 Year
  Sex: Female
  Weight: 57 kg

DRUGS (4)
  1. CAPECITABINE [Suspect]
     Dosage: ON DAYS 1 TO 14 OF A 21 DAY CYCLE.
     Route: 048
     Dates: start: 20041214
  2. BEVACIZUMAB [Suspect]
     Route: 042
     Dates: start: 20041214, end: 20041231
  3. OXALIPLATINE [Suspect]
     Route: 042
     Dates: start: 20041214, end: 20041231
  4. ONDANSETRON [Concomitant]
     Route: 048
     Dates: start: 20041214, end: 20041217

REACTIONS (3)
  - HYPERTENSION [None]
  - PERIPHERAL SENSORY NEUROPATHY [None]
  - TRANSIENT ISCHAEMIC ATTACK [None]
